FAERS Safety Report 6645782-3 (Version None)
Quarter: 2010Q1

REPORT INFORMATION
  Report Type: 
  Country: None (occurrence: None)
  Receive Date: 20100318
  Receipt Date: 20100318
  Transmission Date: 20100710
  Serious: Yes (Hospitalization)
  Sender: FDA-Public Use
  Company Number: None

PATIENT
  Age: 40 Year
  Sex: Male
  Weight: 88.4514 kg

DRUGS (2)
  1. FLUVOXAMINE MALEATE [Suspect]
     Indication: PANIC DISORDER
     Dosage: 200 MG 2 PO PO
     Route: 048
     Dates: start: 19940120, end: 20100317
  2. ASPARTAME [Suspect]

REACTIONS (2)
  - HALLUCINATION [None]
  - HYPOMANIA [None]
